FAERS Safety Report 8793589 (Version 1)
Quarter: 2012Q4

REPORT INFORMATION
  Report Type: 
  Country: FR (occurrence: FR)
  Receive Date: 20120918
  Receipt Date: 20120918
  Transmission Date: 20130627
  Serious: Yes (Hospitalization)
  Sender: FDA-Public Use
  Company Number: PHHY2012FR080615

PATIENT
  Age: 86 Year
  Sex: Female

DRUGS (4)
  1. EXELON PATCH [Suspect]
     Dosage: 4.6 mg,/ 24hrs
     Route: 062
     Dates: start: 201009
  2. AMLOR [Concomitant]
  3. SIMVASTATIN [Concomitant]
  4. ALPRAZOLAM [Concomitant]

REACTIONS (5)
  - Bundle branch block right [Unknown]
  - Bundle branch block left [Unknown]
  - Atrioventricular block [Unknown]
  - Bradycardia [Recovered/Resolved with Sequelae]
  - Syncope [Recovered/Resolved with Sequelae]
